FAERS Safety Report 8055746-3 (Version None)
Quarter: 2012Q1

REPORT INFORMATION
  Report Type: 
  Country: None (occurrence: None)
  Receive Date: 20120119
  Receipt Date: 20120117
  Transmission Date: 20120608
  Serious: Yes (Other)
  Sender: FDA-Public Use
  Company Number: US-JNJFOC-20110907049

PATIENT
  Sex: Male

DRUGS (3)
  1. PREDNISONE [Suspect]
     Indication: PRODUCT USED FOR UNKNOWN INDICATION
  2. LEVAQUIN [Suspect]
     Indication: PROSTATITIS
     Route: 048
     Dates: start: 20100801
  3. CIPROFLOXACIN [Suspect]
     Indication: INFECTION
     Route: 065

REACTIONS (7)
  - MENISCUS LESION [None]
  - TENDONITIS [None]
  - TENDON DISORDER [None]
  - ROTATOR CUFF SYNDROME [None]
  - TENOSYNOVITIS [None]
  - TENDON RUPTURE [None]
  - PLANTAR FASCIITIS [None]
